FAERS Safety Report 18556033 (Version 1)
Quarter: 2020Q4

REPORT INFORMATION
  Report Type: Report from Study
  Country: None (occurrence: US)
  Receive Date: 20201127
  Receipt Date: 20201127
  Transmission Date: 20210114
  Serious: Yes (Other)
  Sender: FDA-Public Use
  Company Number: US-ABBVIE-20K-163-3661923-00

PATIENT
  Age: 70 Year
  Sex: Female

DRUGS (1)
  1. HUMIRA [Suspect]
     Active Substance: ADALIMUMAB
     Indication: PSORIASIS
     Route: 058

REACTIONS (5)
  - Adhesion [Unknown]
  - Sinus operation [Recovered/Resolved]
  - Retinal artery occlusion [Unknown]
  - Cerebrovascular accident [Unknown]
  - Tendonitis [Recovered/Resolved]

NARRATIVE: CASE EVENT DATE: 20201022
